FAERS Safety Report 21133774 (Version 1)
Quarter: 2022Q3

REPORT INFORMATION
  Report Type: Spontaneous
  Country: US (occurrence: US)
  Receive Date: 20220726
  Receipt Date: 20220726
  Transmission Date: 20221027
  Serious: Yes (Hospitalization)
  Sender: FDA-Public Use
  Company Number: US-BRISTOL-MYERS SQUIBB COMPANY-2022-076944

PATIENT
  Age: 83 Year
  Sex: Female

DRUGS (1)
  1. REVLIMID [Suspect]
     Active Substance: LENALIDOMIDE
     Indication: Refractory anaemia with ringed sideroblasts
     Dosage: FIRST DISPENSE  DATE 17-OCT-2015
     Route: 048

REACTIONS (2)
  - Bone disorder [Unknown]
  - Intentional product use issue [Unknown]
